FAERS Safety Report 25553641 (Version 3)
Quarter: 2025Q3

REPORT INFORMATION
  Report Type: Spontaneous
  Country: JP (occurrence: JP)
  Receive Date: 20250715
  Receipt Date: 20250903
  Transmission Date: 20251021
  Serious: No
  Sender: GALDERMA
  Company Number: JP-GALDERMA-JP2025012282

PATIENT

DRUGS (2)
  1. NEMOLIZUMAB [Suspect]
     Active Substance: NEMOLIZUMAB
     Indication: Dermatitis atopic
     Route: 058
     Dates: start: 20250508, end: 20250508
  2. NEMOLIZUMAB [Suspect]
     Active Substance: NEMOLIZUMAB
     Route: 058
     Dates: start: 2025, end: 2025

REACTIONS (1)
  - Arthropod sting [Recovered/Resolved]

NARRATIVE: CASE EVENT DATE: 20250701
